FAERS Safety Report 18178941 (Version 2)
Quarter: 2023Q1

REPORT INFORMATION
  Report Type: Spontaneous
  Country: DE (occurrence: DE)
  Receive Date: 20200820
  Receipt Date: 20230221
  Transmission Date: 20230418
  Serious: Yes (Life-Threatening, Hospitalization, Other)
  Sender: FDA-Public Use
  Company Number: None

PATIENT
  Age: 53 Year
  Sex: Male
  Weight: 87 kg

DRUGS (10)
  1. CYCLOPHOSPHAMIDE [Suspect]
     Active Substance: CYCLOPHOSPHAMIDE
     Indication: Plasma cell myeloma
     Dosage: 1000 MG/M2 (DOSAGE FORM: UNSPECIFIED)
     Route: 042
     Dates: start: 20170627, end: 20170630
  2. BORTEZOMIB [Suspect]
     Active Substance: BORTEZOMIB
     Indication: Plasma cell myeloma
     Dosage: 2.6 MG/M2 (LYOPHILIZED POWDER, ON DAYS 1, 4, 8, 11 AND ONE WEEK OFF OF 21 DAY CYCLE)
     Route: 058
     Dates: start: 20170307, end: 20170403
  3. BORTEZOMIB [Suspect]
     Active Substance: BORTEZOMIB
     Dosage: 2.6 MG/M2, QW (DOSAGE FORM: LYOPHILIZED POWDER, ON DAYS 1, 4, 8, 11 AND ONE WEEK OFF OF 21 DAY CYCLE
     Route: 058
     Dates: start: 20170307, end: 20170403
  4. DEXAMETHASONE [Suspect]
     Active Substance: DEXAMETHASONE
     Indication: Plasma cell myeloma
     Dosage: 8 MG (DOSAGE FORM: UNSPECIFIED, C 1 PLUS 2, DAY 1,8, 15, C3 PLUS 4 DAY 1, 11)
     Route: 048
     Dates: start: 20170307, end: 20170619
  5. DEXAMETHASONE [Suspect]
     Active Substance: DEXAMETHASONE
     Dosage: 12 MG (UNSPECIFIED)
     Route: 042
     Dates: start: 20170307, end: 20170619
  6. DEXAMETHASONE [Suspect]
     Active Substance: DEXAMETHASONE
     Dosage: 20 MG (UNSPECIFIED, ON DAYS 2, 4-5, 9, 11-12)
     Route: 048
     Dates: start: 20170307, end: 20170619
  7. DEXAMETHASONE [Suspect]
     Active Substance: DEXAMETHASONE
     Dosage: 40 MG (DOSAGE FORM: UNSPECIFIED, ON DAY 1-4)
     Route: 048
     Dates: start: 20170627, end: 20170630
  8. LENALIDOMIDE [Suspect]
     Active Substance: LENALIDOMIDE
     Indication: Plasma cell myeloma
     Dosage: 25 MG (DOSAGE FORM: UNSPECIFIED, FOR 2 WEEKS AND 1 WEEK OFF)
     Route: 048
     Dates: start: 20170307, end: 20170619
  9. ELOTUZUMAB [Suspect]
     Active Substance: ELOTUZUMAB
     Indication: Plasma cell myeloma
     Dosage: 10 MG/KG (DOSAGE FORM: UNSPECIFIED, C1 PLUS 2, DAY1, 8, 15, C3 PLUS 4 DAY 1,11)
     Route: 042
     Dates: start: 20170307, end: 20170619
  10. ADRIAMYCIN [Suspect]
     Active Substance: DOXORUBICIN HYDROCHLORIDE
     Indication: Plasma cell myeloma
     Dosage: 15 MG/M2
     Route: 042
     Dates: start: 20170627, end: 20170630

REACTIONS (1)
  - Septic shock [Recovered/Resolved with Sequelae]

NARRATIVE: CASE EVENT DATE: 20170405
